FAERS Safety Report 8544938-2 (Version None)
Quarter: 2012Q3

REPORT INFORMATION
  Report Type: 
  Country: None (occurrence: None)
  Receive Date: 20120727
  Receipt Date: 20111121
  Transmission Date: 20120928
  Serious: Yes (Hospitalization, Other)
  Sender: FDA-Public Use
  Company Number: US-009507513-2011SP033289

PATIENT

DRUGS (5)
  1. PRILOSEC [Concomitant]
     Indication: GASTROOESOPHAGEAL REFLUX DISEASE
  2. MK-0764A [Suspect]
     Indication: PRODUCT USED FOR UNKNOWN INDICATION
     Dosage: 40 MG, QOD
     Route: 048
     Dates: start: 20110708
  3. MK-0764A [Suspect]
     Indication: MEDICAL OBSERVATION
     Dosage: 40 MG, ONCE
     Route: 048
     Dates: start: 20110710
  4. CHOLECALCIFEROL [Concomitant]
  5. PRILOSEC [Suspect]
     Indication: PRODUCT USED FOR UNKNOWN INDICATION
     Dosage: 1 DF, UNKNOWN
     Dates: start: 20110709

REACTIONS (32)
  - NONSPECIFIC REACTION [None]
  - SWELLING FACE [None]
  - VISION BLURRED [None]
  - RASH [None]
  - SKIN DISCOLOURATION [None]
  - HUNGER [None]
  - LIP SWELLING [None]
  - GENERALISED OEDEMA [None]
  - DISCOMFORT [None]
  - METABOLIC DISORDER [None]
  - LOCAL SWELLING [None]
  - MYALGIA [None]
  - TREMOR [None]
  - BLOOD GLUCOSE INCREASED [None]
  - EYE DISORDER [None]
  - SKIN DISORDER [None]
  - STOMATITIS [None]
  - POLLAKIURIA [None]
  - HYPERTENSION [None]
  - JOINT SWELLING [None]
  - INFLAMMATION [None]
  - SLEEP DISORDER [None]
  - SOCIAL PROBLEM [None]
  - HYPERSENSITIVITY [None]
  - HYPOAESTHESIA [None]
  - URTICARIA [None]
  - PRURITUS [None]
  - CHILLS [None]
  - THIRST [None]
  - ARTHRALGIA [None]
  - PAIN [None]
  - GLOSSODYNIA [None]
